FAERS Safety Report 9512006 (Version 2)
Quarter: 2013Q3

REPORT INFORMATION
  Report Type: Report from Study
  Country: IT (occurrence: IT)
  Receive Date: 20130910
  Receipt Date: 20130910
  Transmission Date: 20140515
  Serious: Yes (Death, Hospitalization)
  Sender: FDA-Public Use
  Company Number: PHHO2013IT009358

PATIENT
  Sex: Female
  Weight: 54 kg

DRUGS (6)
  1. EVEROLIMUS [Suspect]
     Indication: NEUROENDOCRINE CARCINOMA
     Dosage: 10 MG, DAILY
     Route: 048
     Dates: start: 20110422, end: 20130520
  2. METOCLOPRAMIDE [Concomitant]
     Indication: NAUSEA
     Dosage: 10 MG, BID
     Route: 048
     Dates: start: 20110419
  3. OMEPRAZOLE [Concomitant]
     Dosage: 20 MG,DAY
     Dates: start: 201111
  4. FENTANYL [Concomitant]
     Indication: BACK PAIN
     Dosage: 75 MG, UNK
     Dates: start: 200211
  5. PREGABALIN [Concomitant]
     Indication: BACK PAIN
     Dosage: 75 MG, UNK
     Route: 048
     Dates: start: 201303
  6. DESAMETASONE FOSF//DEXAMETHASONE PHOSPHATE [Concomitant]
     Dosage: 64 DRP, DAILY
     Dates: start: 2011

REACTIONS (4)
  - Death [Fatal]
  - Spinal cord compression [Unknown]
  - Pain [Unknown]
  - General physical health deterioration [Unknown]
